FAERS Safety Report 19786590 (Version 1)
Quarter: 2021Q3

REPORT INFORMATION
  Report Type: Other
  Country: US (occurrence: US)
  Receive Date: 20210903
  Receipt Date: 20210903
  Transmission Date: 20211014
  Serious: Yes (Other)
  Sender: FDA-Public Use
  Company Number: US-ROCHE-2902669

PATIENT

DRUGS (9)
  1. PREDNISOLONE. [Suspect]
     Active Substance: PREDNISOLONE
     Indication: DERMATOMYOSITIS
     Route: 065
  2. METHOTREXATE. [Suspect]
     Active Substance: METHOTREXATE
     Indication: DERMATOMYOSITIS
     Route: 065
  3. CYCLOSPORINE. [Suspect]
     Active Substance: CYCLOSPORINE
     Indication: DERMATOMYOSITIS
     Route: 065
  4. MYCOPHENOLATE MOFETIL. [Suspect]
     Active Substance: MYCOPHENOLATE MOFETIL
     Indication: DERMATOMYOSITIS
     Route: 065
  5. HYDROXYCHLOROQUINE [Suspect]
     Active Substance: HYDROXYCHLOROQUINE
     Indication: DERMATOMYOSITIS
     Route: 065
  6. LEFLUNOMIDE. [Suspect]
     Active Substance: LEFLUNOMIDE
     Indication: DERMATOMYOSITIS
     Route: 065
  7. RITUXIMAB. [Suspect]
     Active Substance: RITUXIMAB
     Indication: DERMATOMYOSITIS
     Route: 065
  8. CYCLOPHOSPHAMIDE. [Suspect]
     Active Substance: CYCLOPHOSPHAMIDE
     Indication: DERMATOMYOSITIS
     Route: 065
  9. PREDNISONE. [Suspect]
     Active Substance: PREDNISONE
     Indication: DERMATOMYOSITIS
     Route: 065

REACTIONS (18)
  - Thoracic vertebral fracture [Unknown]
  - Cytomegalovirus infection reactivation [Unknown]
  - Short stature [Unknown]
  - Cellulitis [Unknown]
  - Vulvovaginal candidiasis [Unknown]
  - Osteonecrosis [Unknown]
  - Meningitis viral [Unknown]
  - Respiratory syncytial virus infection [Unknown]
  - Weight gain poor [Unknown]
  - Pleural effusion [Unknown]
  - Avulsion fracture [Unknown]
  - Tibia fracture [Unknown]
  - Impetigo [Unknown]
  - Herpes zoster [Unknown]
  - Pneumonia [Unknown]
  - Streptococcal bacteraemia [Unknown]
  - Campylobacter infection [Unknown]
  - Oral candidiasis [Unknown]
